FAERS Safety Report 17546250 (Version 1)
Quarter: 2020Q1

REPORT INFORMATION
  Report Type: Spontaneous
  Country: US (occurrence: US)
  Receive Date: 20200316
  Receipt Date: 20200316
  Transmission Date: 20200409
  Serious: Yes (Hospitalization, Disabling, Other)
  Sender: FDA-Public Use
  Company Number: None

PATIENT
  Age: 56 Year
  Sex: Female
  Weight: 40.95 kg

DRUGS (8)
  1. PROBIOTICS [Concomitant]
     Active Substance: PROBIOTICS NOS
  2. CLINDAMYCIN HCL [Suspect]
     Active Substance: CLINDAMYCIN HYDROCHLORIDE
     Indication: SKIN INFECTION
     Dosage: ?          QUANTITY:1 CAPSULE(S);?
     Route: 048
     Dates: start: 20200203, end: 20200213
  3. LAMICTAL [Concomitant]
     Active Substance: LAMOTRIGINE
  4. VANCOMYCIN [Concomitant]
     Active Substance: VANCOMYCIN
  5. BUPROPION. [Concomitant]
     Active Substance: BUPROPION
  6. ADDERALL [Concomitant]
     Active Substance: AMPHETAMINE ASPARTATE\AMPHETAMINE SULFATE\DEXTROAMPHETAMINE SACCHARATE\DEXTROAMPHETAMINE SULFATE
  7. ATIVAN [Concomitant]
     Active Substance: LORAZEPAM
  8. VITAMIN D [Concomitant]
     Active Substance: VITAMIN D NOS

REACTIONS (1)
  - Clostridium difficile infection [None]

NARRATIVE: CASE EVENT DATE: 20200220
